FAERS Safety Report 10567557 (Version 1)
Quarter: 2014Q4

REPORT INFORMATION
  Report Type: Spontaneous
  Country: US (occurrence: None)
  Receive Date: 20141105
  Receipt Date: 20141105
  Transmission Date: 20150529
  Serious: Yes (Disabling)
  Sender: FDA-Public Use
  Company Number: None

PATIENT
  Age: 17 Year
  Sex: Female
  Weight: 113.4 kg

DRUGS (1)
  1. IMPLANON [Suspect]
     Active Substance: ETONOGESTREL
     Dates: start: 20100923, end: 20120909

REACTIONS (7)
  - Muscle spasms [None]
  - Malaise [None]
  - General symptom [None]
  - Anxiety [None]
  - Abortion spontaneous [None]
  - Depression [None]
  - Infertility female [None]

NARRATIVE: CASE EVENT DATE: 20120909
